FAERS Safety Report 5593547-6 (Version None)
Quarter: 2007Q4

REPORT INFORMATION
  Report Type: 
  Country: None (occurrence: None)
  Receive Date: 20071214
  Receipt Date: 20061108
  Transmission Date: 20080405
  Serious: Yes (Other)
  Sender: FDA-Public Use
  Company Number: 2006136600

PATIENT
  Age: 78 Year
  Sex: Male
  Weight: 113.3993 kg

DRUGS (4)
  1. XANAX [Suspect]
  2. LUNESTA [Suspect]
     Indication: INSOMNIA
     Dates: start: 20061015
  3. FIORICET [Concomitant]
  4. ATIVAN [Concomitant]

REACTIONS (2)
  - SOMNOLENCE [None]
  - WEIGHT INCREASED [None]
